FAERS Safety Report 10955291 (Version 4)
Quarter: 2017Q2

REPORT INFORMATION
  Report Type: Report from Study
  Country: GB (occurrence: GB)
  Receive Date: 20150326
  Receipt Date: 20170623
  Transmission Date: 20170829
  Serious: Yes (Other)
  Sender: FDA-Public Use
  Company Number: GB-ROCHE-1555585

PATIENT

DRUGS (2)
  1. ALTEPLASE [Suspect]
     Active Substance: ALTEPLASE
     Dosage: MAXIMUM 90 MG WITH 90% OF THE DOSE IN A 1 H INFUSION
     Route: 041
  2. ALTEPLASE [Suspect]
     Active Substance: ALTEPLASE
     Indication: ISCHAEMIC STROKE
     Dosage: MAXIMUM 90 MG WITH 10% OF DOSE AS BOLUS
     Route: 040

REACTIONS (1)
  - Fall [Unknown]
